FAERS Safety Report 12698967 (Version 2)
Quarter: 2016Q3

REPORT INFORMATION
  Report Type: Spontaneous
  Country: JP (occurrence: JP)
  Receive Date: 20160830
  Receipt Date: 20160928
  Transmission Date: 20161109
  Serious: Yes (Other)
  Sender: FDA-Public Use
  Company Number: JP-MYLANLABS-2016M1035590

PATIENT

DRUGS (14)
  1. IFOSFAMIDE. [Suspect]
     Active Substance: IFOSFAMIDE
     Indication: HEPATOBLASTOMA
     Route: 065
  2. CARBOPLATIN. [Suspect]
     Active Substance: CARBOPLATIN
     Indication: METASTASES TO LUNG
  3. CISPLATIN. [Suspect]
     Active Substance: CISPLATIN
     Indication: HEPATOBLASTOMA
     Route: 065
  4. LASTET [Suspect]
     Active Substance: ETOPOSIDE
     Indication: METASTASES TO LUNG
  5. MELPHALAN [Suspect]
     Active Substance: MELPHALAN
     Indication: METASTASES TO LUNG
  6. EPIRUBICIN [Suspect]
     Active Substance: EPIRUBICIN
     Indication: HEPATOBLASTOMA
     Route: 042
  7. EPIRUBICIN [Suspect]
     Active Substance: EPIRUBICIN
     Indication: METASTASES TO LUNG
  8. CISPLATIN. [Suspect]
     Active Substance: CISPLATIN
     Indication: METASTASES TO LUNG
  9. IFOSFAMIDE. [Suspect]
     Active Substance: IFOSFAMIDE
     Indication: METASTASES TO LUNG
  10. LASTET [Suspect]
     Active Substance: ETOPOSIDE
     Indication: HEPATOBLASTOMA
     Route: 065
  11. PIRARUBICIN [Suspect]
     Active Substance: PIRARUBICIN
     Indication: METASTASES TO LUNG
  12. CARBOPLATIN. [Suspect]
     Active Substance: CARBOPLATIN
     Indication: HEPATOBLASTOMA
     Route: 065
  13. MELPHALAN [Suspect]
     Active Substance: MELPHALAN
     Indication: HEPATOBLASTOMA
     Route: 065
  14. PIRARUBICIN [Suspect]
     Active Substance: PIRARUBICIN
     Indication: HEPATOBLASTOMA
     Route: 065

REACTIONS (1)
  - Deafness [Unknown]
